FAERS Safety Report 12749072 (Version 1)
Quarter: 2016Q3

REPORT INFORMATION
  Report Type: Spontaneous
  Country: US (occurrence: US)
  Receive Date: 20160915
  Receipt Date: 20160915
  Transmission Date: 20161109
  Serious: No
  Sender: FDA-Public Use
  Company Number: US-ASTELLAS-2016US012016

PATIENT
  Sex: Male

DRUGS (2)
  1. XTANDI [Suspect]
     Active Substance: ENZALUTAMIDE
     Indication: PROSTATE CANCER METASTATIC
     Route: 065
     Dates: start: 201602
  2. XTANDI [Suspect]
     Active Substance: ENZALUTAMIDE
     Indication: METASTASES TO BONE

REACTIONS (8)
  - Adverse event [Unknown]
  - Crying [Unknown]
  - Mood swings [Unknown]
  - Depression [Unknown]
  - Nausea [Unknown]
  - Retching [Unknown]
  - Frustration tolerance decreased [Unknown]
  - Confusional state [Unknown]
